FAERS Safety Report 24714276 (Version 1)
Quarter: 2024Q4

REPORT INFORMATION
  Report Type: Spontaneous
  Country: US (occurrence: US)
  Receive Date: 20241209
  Receipt Date: 20241209
  Transmission Date: 20250114
  Serious: Yes (Other)
  Sender: AMGEN
  Company Number: US-AMGEN-USASP2024215630

PATIENT
  Age: 46 Year
  Sex: Male

DRUGS (7)
  1. RITUXIMAB [Suspect]
     Active Substance: RITUXIMAB
     Indication: Immunosuppressant drug therapy
     Dosage: UNK
     Route: 065
  2. PREDNISONE [Suspect]
     Active Substance: PREDNISONE
     Indication: Immunosuppressant drug therapy
     Dosage: UNK
     Route: 065
  3. THYMOGLOBULIN [Concomitant]
     Active Substance: LAPINE T-LYMPHOCYTE IMMUNE GLOBULIN
     Indication: Immunosuppressant drug therapy
  4. TACROLIMUS [Concomitant]
     Active Substance: TACROLIMUS
     Indication: Immunosuppressant drug therapy
  5. MYCOPHENOLATE MOFETIL [Concomitant]
     Active Substance: MYCOPHENOLATE MOFETIL
     Indication: Immunosuppressant drug therapy
  6. TROPICAMIDE [Concomitant]
     Active Substance: TROPICAMIDE
     Route: 061
  7. PHENYLEPHRINE [Concomitant]
     Active Substance: PHENYLEPHRINE

REACTIONS (9)
  - Retinal degeneration [Unknown]
  - Blindness [Unknown]
  - Sensory loss [Unknown]
  - Ocular procedural complication [Unknown]
  - Procedural haemorrhage [Unknown]
  - Disruption of the photoreceptor inner segment-outer segment [Unknown]
  - Post procedural inflammation [Unknown]
  - Optic atrophy [Unknown]
  - Off label use [Unknown]
